FAERS Safety Report 8128351-8 (Version None)
Quarter: 2012Q1

REPORT INFORMATION
  Report Type: 
  Country: None (occurrence: None)
  Receive Date: 20120210
  Receipt Date: 20120208
  Transmission Date: 20120608
  Serious: Yes (Hospitalization, Other)
  Sender: FDA-Public Use
  Company Number: DE-AMGEN-DEUSP2012005891

PATIENT
  Age: 76 Year
  Sex: Female
  Weight: 75 kg

DRUGS (7)
  1. DOXORUBICIN HCL [Concomitant]
     Indication: LYMPHOMA
     Dosage: 90 MG, UNK
     Route: 042
     Dates: start: 20111220, end: 20120119
  2. PREDNISONE TAB [Concomitant]
     Indication: LEUKAEMIA
  3. ANTINEOPLASTIC AGENTS [Concomitant]
     Indication: LYMPHOMA
  4. CYCLOPHOSPHAMIDE [Concomitant]
     Indication: LYMPHOMA
     Dosage: 1350 MG, UNK
     Route: 042
     Dates: start: 20111220, end: 20120119
  5. VINCRISTINE [Concomitant]
     Indication: LYMPHOMA
     Dosage: 1 MG, UNK
     Route: 042
     Dates: start: 20111220, end: 20120119
  6. NEULASTA [Suspect]
     Indication: CHEMOTHERAPY
     Dosage: 6 MG, PER CHEMO REGIM
     Route: 058
     Dates: start: 20120106
  7. MABTHERA [Concomitant]
     Indication: LYMPHOMA
     Dosage: 700 MG, UNK
     Route: 042
     Dates: start: 20111219, end: 20120118

REACTIONS (3)
  - BLOOD COUNT ABNORMAL [None]
  - DRUG INEFFECTIVE [None]
  - LEUKOPENIA [None]
